FAERS Safety Report 5602029-4 (Version None)
Quarter: 2008Q1

REPORT INFORMATION
  Report Type: 
  Country: None (occurrence: None)
  Receive Date: 20080122
  Receipt Date: 20080122
  Transmission Date: 20080703
  Serious: Yes (Other)
  Sender: FDA-Public Use
  Company Number: None

PATIENT
  Age: 45 Year
  Sex: Female
  Weight: 68.0396 kg

DRUGS (1)
  1. LEVAQUIN [Suspect]
     Indication: BRONCHITIS
     Dosage: 750MG DAILY PO
     Route: 048
     Dates: start: 20061225, end: 20061225

REACTIONS (9)
  - ANXIETY [None]
  - FAECES PALE [None]
  - FEELING HOT [None]
  - HALLUCINATION, AUDITORY [None]
  - HALLUCINATION, VISUAL [None]
  - INSOMNIA [None]
  - MALAISE [None]
  - PANIC REACTION [None]
  - STOMACH DISCOMFORT [None]
